FAERS Safety Report 6476536-9 (Version None)
Quarter: 2009Q4

REPORT INFORMATION
  Report Type: 
  Country: None (occurrence: None)
  Receive Date: 20091207
  Receipt Date: 20091201
  Transmission Date: 20100525
  Serious: Yes (Death, Other)
  Sender: FDA-Public Use
  Company Number: JP-BAYER-200811434BYL

PATIENT
  Age: 77 Year
  Sex: Male
  Weight: 62 kg

DRUGS (9)
  1. NEXAVAR [Suspect]
     Indication: RENAL CELL CARCINOMA
     Dosage: TOTAL DAILY DOSE: 800 MG  UNIT DOSE: 200 MG
     Route: 048
     Dates: start: 20080512, end: 20080606
  2. NEXAVAR [Suspect]
     Dosage: TOTAL DAILY DOSE: 400 MG  UNIT DOSE: 200 MG
     Route: 048
     Dates: start: 20080607, end: 20080610
  3. MERCAZOLE [Concomitant]
     Indication: HYPERTHYROIDISM
     Dosage: AS USED: 5 MG
     Route: 048
     Dates: start: 20080512, end: 20080610
  4. ASPIRIN [Concomitant]
     Indication: ATRIAL FIBRILLATION
     Dosage: AS USED: 100 MG
     Route: 048
     Dates: start: 20080512, end: 20080610
  5. MUCODYNE [Concomitant]
     Dosage: AS USED: 1500 MG
     Route: 048
     Dates: start: 20080512, end: 20080610
  6. LOBU [Concomitant]
     Dosage: AS USED: 180 MG
     Route: 048
     Dates: start: 20080512, end: 20080610
  7. SELBEX [Concomitant]
     Dosage: AS USED: 150 MG
     Route: 048
     Dates: start: 20080512, end: 20080610
  8. ARGAMATE [Concomitant]
     Dosage: AS USED: 25 G
     Route: 048
     Dates: start: 20080512, end: 20080610
  9. EVIPROSTAT [Concomitant]
     Indication: BENIGN PROSTATIC HYPERPLASIA
     Dosage: AS USED: 6 DF
     Route: 048
     Dates: start: 20080512, end: 20080610

REACTIONS (5)
  - ATRIAL FIBRILLATION [None]
  - ATRIOVENTRICULAR BLOCK [None]
  - DELIRIUM [None]
  - RENAL CELL CARCINOMA [None]
  - SKIN ULCER [None]
